FAERS Safety Report 4477552-9 (Version None)
Quarter: 2004Q4

REPORT INFORMATION
  Report Type: 
  Country: None (occurrence: None)
  Receive Date: 20041018
  Receipt Date: 20020328
  Transmission Date: 20050328
  Serious: Yes (Death, Hospitalization, Other)
  Sender: FDA-Public Use
  Company Number: US-AMGEN-US011114

PATIENT
  Age: 45 Year
  Sex: Male
  Weight: 49 kg

DRUGS (2)
  1. EPOGEN [Suspect]
     Indication: DIALYSIS
     Dates: start: 20010301
  2. PREDNISONE TAB [Concomitant]
     Dates: start: 19990101

REACTIONS (9)
  - ACID FAST BACILLI INFECTION [None]
  - BACILLUS INFECTION [None]
  - BACTERAEMIA [None]
  - BONE MARROW DEPRESSION [None]
  - DEATH [None]
  - ERYTHROID MATURATION ARREST [None]
  - GASTROINTESTINAL HAEMORRHAGE [None]
  - SEPSIS [None]
  - THERAPEUTIC RESPONSE DECREASED [None]
